FAERS Safety Report 6418773-5 (Version None)
Quarter: 2009Q4

REPORT INFORMATION
  Report Type: 
  Country: None (occurrence: None)
  Receive Date: 20091026
  Receipt Date: 20091014
  Transmission Date: 20100525
  Serious: Yes (Hospitalization)
  Sender: FDA-Public Use
  Company Number: 2009AC000065

PATIENT
  Age: 77 Year
  Sex: Female

DRUGS (28)
  1. DIGOXIN [Suspect]
     Dosage: 0.25 MG; QD; PO
     Route: 048
     Dates: start: 20070612
  2. ANTIVERT [Concomitant]
  3. ATIVAN [Concomitant]
  4. CATAPRES [Concomitant]
  5. CIPROFLOXACIN [Concomitant]
  6. DETROL [Concomitant]
  7. POTASSIUM CHLORIDE [Concomitant]
  8. METOLAZONE [Concomitant]
  9. QUINAGLUTE [Concomitant]
  10. ZETIA [Concomitant]
  11. KLOR-CON [Concomitant]
  12. PHENAZOPYRID [Concomitant]
  13. FLUCONAZOLE [Concomitant]
  14. NITROFUR [Concomitant]
  15. AMPICILLIN [Concomitant]
  16. LORAZEPAM [Concomitant]
  17. QUINIDINE GLUCON [Concomitant]
  18. TOPROL-XL [Concomitant]
  19. CADUET [Concomitant]
  20. DILTIAZEM [Concomitant]
  21. TRIAMTERENE [Concomitant]
  22. PREMARIN [Concomitant]
  23. PREVACID [Concomitant]
  24. NITROFURANTOIN [Concomitant]
  25. METHYLPREDNISOLONE 4MG TAB [Concomitant]
  26. MECLIZINE [Concomitant]
  27. PRAVACHOL [Concomitant]
  28. COREG [Concomitant]

REACTIONS (24)
  - ARRHYTHMIA [None]
  - ARTHRALGIA [None]
  - ARTHRITIS [None]
  - ASTHENIA [None]
  - BLOOD CREATININE INCREASED [None]
  - BLOOD UREA INCREASED [None]
  - BRADYCARDIA [None]
  - BURSITIS [None]
  - CARDIAC FAILURE CONGESTIVE [None]
  - CARDIAC MURMUR [None]
  - CULTURE URINE POSITIVE [None]
  - DIZZINESS [None]
  - ECONOMIC PROBLEM [None]
  - FOREIGN BODY [None]
  - GAIT DISTURBANCE [None]
  - HYPERTENSIVE HEART DISEASE [None]
  - HYPOPHAGIA [None]
  - MULTIPLE INJURIES [None]
  - NAUSEA [None]
  - OSTEOARTHRITIS [None]
  - PRESYNCOPE [None]
  - PSEUDOMONAS INFECTION [None]
  - TENDON DISORDER [None]
  - THERAPEUTIC AGENT TOXICITY [None]
